FAERS Safety Report 7423251-0 (Version None)
Quarter: 2011Q2

REPORT INFORMATION
  Report Type: 
  Country: None (occurrence: None)
  Receive Date: 20110419
  Receipt Date: 20101210
  Transmission Date: 20111010
  Serious: Yes (Hospitalization, Other)
  Sender: FDA-Public Use
  Company Number: US-BAYER-201014246NA

PATIENT
  Age: 26 Year
  Sex: Female
  Weight: 109 kg

DRUGS (8)
  1. ZOFRAN [Concomitant]
     Indication: NAUSEA
  2. YAZ [Suspect]
     Route: 048
     Dates: start: 20080201
  3. COUMADIN [Concomitant]
     Indication: DEEP VEIN THROMBOSIS
  4. YASMIN [Suspect]
     Indication: PRODUCT USED FOR UNKNOWN INDICATION
     Route: 048
     Dates: start: 20080201
  5. ZOFRAN [Concomitant]
     Indication: VOMITING
  6. ZOFRAN [Concomitant]
     Indication: DIZZINESS
  7. ANTITHROMBOTIC AGENTS [Concomitant]
     Indication: PRODUCT USED FOR UNKNOWN INDICATION
     Route: 065
  8. IBUPROFEN [Concomitant]
     Indication: PRODUCT USED FOR UNKNOWN INDICATION
     Route: 065

REACTIONS (9)
  - IRON DEFICIENCY ANAEMIA [None]
  - FATIGUE [None]
  - MENOMETRORRHAGIA [None]
  - DEEP VEIN THROMBOSIS [None]
  - DIZZINESS [None]
  - NAUSEA [None]
  - SYNCOPE [None]
  - VOMITING [None]
  - PAIN IN EXTREMITY [None]
